FAERS Safety Report 7753833 (Version 80)
Quarter: 2018Q2

REPORT INFORMATION
  Report Type: Report from Study
  Country: CA (occurrence: CA)
  Receive Date: 20110110
  Receipt Date: 20180517
  Transmission Date: 20180711
  Serious: Yes (Hospitalization, Other)
  Sender: FDA-Public Use
  Company Number: CA-ROCHE-751749

PATIENT
  Age: 42 Year
  Sex: Female
  Weight: 105 kg

DRUGS (25)
  1. ACTEMRA [Suspect]
     Active Substance: TOCILIZUMAB
     Route: 042
  2. AMOXICILLIN. [Suspect]
     Active Substance: AMOXICILLIN
     Indication: TYMPANIC MEMBRANE PERFORATION
  3. ACTEMRA [Suspect]
     Active Substance: TOCILIZUMAB
     Route: 042
  4. DICLOFENAC [Suspect]
     Active Substance: DICLOFENAC
     Indication: PRODUCT USED FOR UNKNOWN INDICATION
     Route: 065
  5. AMOXICILLIN. [Suspect]
     Active Substance: AMOXICILLIN
     Indication: SINUSITIS
     Dosage: STOPPED ON DAY 8 OF 10 OF TREATMENT
     Route: 065
     Dates: start: 201411
  6. CARDIZEM [Concomitant]
     Active Substance: DILTIAZEM HYDROCHLORIDE
     Indication: HYPERTENSION
     Route: 048
  7. ACTEMRA [Suspect]
     Active Substance: TOCILIZUMAB
     Route: 042
     Dates: start: 20110207, end: 20110207
  8. ACTEMRA [Suspect]
     Active Substance: TOCILIZUMAB
     Route: 042
  9. ACTEMRA [Suspect]
     Active Substance: TOCILIZUMAB
     Route: 042
  10. ARAVA [Concomitant]
     Active Substance: LEFLUNOMIDE
  11. CLONAZEPAM. [Concomitant]
     Active Substance: CLONAZEPAM
     Indication: RESTLESS LEGS SYNDROME
  12. ACTEMRA [Suspect]
     Active Substance: TOCILIZUMAB
     Indication: RHEUMATOID ARTHRITIS
     Route: 042
  13. ACTEMRA [Suspect]
     Active Substance: TOCILIZUMAB
     Route: 042
  14. ACTEMRA [Suspect]
     Active Substance: TOCILIZUMAB
     Route: 042
  15. CARDIZEM [Concomitant]
     Active Substance: DILTIAZEM HYDROCHLORIDE
     Route: 048
  16. ACTEMRA [Suspect]
     Active Substance: TOCILIZUMAB
     Route: 042
  17. ACTEMRA [Suspect]
     Active Substance: TOCILIZUMAB
     Route: 042
  18. ACTEMRA [Suspect]
     Active Substance: TOCILIZUMAB
     Route: 042
  19. CARDIZEM [Concomitant]
     Active Substance: DILTIAZEM HYDROCHLORIDE
     Dosage: DOSAGE INCREASED
     Route: 048
  20. CIPRALEX [Concomitant]
     Active Substance: ESCITALOPRAM OXALATE
  21. OMEGA 3 [Concomitant]
     Active Substance: OMEGA-3 FATTY ACIDS
     Dosage: DRUG REPORTED: OMEGA 3
     Route: 065
  22. ACTEMRA [Suspect]
     Active Substance: TOCILIZUMAB
     Route: 042
  23. ABATACEPT [Suspect]
     Active Substance: ABATACEPT
     Indication: PRODUCT USED FOR UNKNOWN INDICATION
     Route: 042
     Dates: start: 201005, end: 201011
  24. PANTOLOC [Concomitant]
     Active Substance: PANTOPRAZOLE SODIUM
     Indication: ANTACID THERAPY
     Route: 048
  25. AVAPRO [Concomitant]
     Active Substance: IRBESARTAN
     Indication: HYPERTENSION
     Route: 048

REACTIONS (67)
  - Hepatic steatosis [Unknown]
  - Sinusitis [Not Recovered/Not Resolved]
  - Ear infection [Recovered/Resolved]
  - Nephrolithiasis [Not Recovered/Not Resolved]
  - Arthrodesis [Recovering/Resolving]
  - Nephrolithiasis [Not Recovered/Not Resolved]
  - Skin swelling [Not Recovered/Not Resolved]
  - Road traffic accident [Unknown]
  - Cellulitis [Recovered/Resolved]
  - Nasopharyngitis [Not Recovered/Not Resolved]
  - Tinnitus [Unknown]
  - Tympanic membrane perforation [Unknown]
  - Paranasal sinus discomfort [Not Recovered/Not Resolved]
  - Hypertension [Unknown]
  - Dizziness [Unknown]
  - Urinary tract obstruction [Not Recovered/Not Resolved]
  - Cystitis [Unknown]
  - Conjunctivitis [Recovering/Resolving]
  - Nasopharyngitis [Recovering/Resolving]
  - Nasal congestion [Not Recovered/Not Resolved]
  - Sebaceous gland infection [Unknown]
  - Arthralgia [Unknown]
  - Fibrous histiocytoma [Recovered/Resolved]
  - Weight abnormal [Unknown]
  - Blood pressure increased [Not Recovered/Not Resolved]
  - Urinary tract infection [Not Recovered/Not Resolved]
  - Decubitus ulcer [Recovered/Resolved]
  - Weight increased [Not Recovered/Not Resolved]
  - Blood pressure inadequately controlled [Unknown]
  - Neck pain [Not Recovered/Not Resolved]
  - Sinusitis [Recovering/Resolving]
  - Pyrexia [Not Recovered/Not Resolved]
  - Myalgia [Unknown]
  - Somnolence [Not Recovered/Not Resolved]
  - Rhinorrhoea [Not Recovered/Not Resolved]
  - Malaise [Unknown]
  - Weight decreased [Not Recovered/Not Resolved]
  - Spinal pain [Not Recovered/Not Resolved]
  - Cystitis [Recovered/Resolved]
  - Infected bite [Unknown]
  - Heart rate decreased [Unknown]
  - Psoriasis [Recovered/Resolved]
  - Arthropod bite [Recovering/Resolving]
  - Nasal congestion [Unknown]
  - Ligament sprain [Unknown]
  - Urticaria [Unknown]
  - Arthropod bite [Not Recovered/Not Resolved]
  - Hydronephrosis [Recovered/Resolved]
  - Parotid gland enlargement [Recovered/Resolved]
  - Thermal burn [Recovered/Resolved]
  - Headache [Unknown]
  - Infusion related reaction [Unknown]
  - Blood urine present [Unknown]
  - Blood pressure systolic increased [Unknown]
  - Ureteric obstruction [Not Recovered/Not Resolved]
  - Bone swelling [Unknown]
  - Lung infection [Recovered/Resolved]
  - Psoriasis [Recovered/Resolved]
  - Incision site haemorrhage [Recovered/Resolved]
  - Bronchial hyperreactivity [Not Recovered/Not Resolved]
  - Hepatic enzyme increased [Recovered/Resolved]
  - Nasopharyngitis [Not Recovered/Not Resolved]
  - Dysphonia [Not Recovered/Not Resolved]
  - Spinal pain [Unknown]
  - Poor venous access [Unknown]
  - Skin infection [Recovering/Resolving]
  - Musculoskeletal chest pain [Unknown]

NARRATIVE: CASE EVENT DATE: 20101209
